FAERS Safety Report 9559158 (Version 1)
Quarter: 2013Q3

REPORT INFORMATION
  Report Type: Spontaneous
  Country: CH (occurrence: CH)
  Receive Date: 20130927
  Receipt Date: 20130927
  Transmission Date: 20140515
  Serious: Yes (Hospitalization, Other)
  Sender: FDA-Public Use
  Company Number: CH-PAR PHARMACEUTICAL, INC-2013SCPR007685

PATIENT
  Sex: 0

DRUGS (2)
  1. DEXAMETHASONE [Suspect]
     Indication: VIRILISM FOETAL
     Dosage: 0.5 MG, TID
     Route: 064
  2. DEXAMETHASONE [Suspect]
     Indication: PROPHYLAXIS

REACTIONS (8)
  - Encephalopathy [Recovered/Resolved]
  - Partial seizures [Recovered/Resolved]
  - Foetal growth restriction [Unknown]
  - Hypoglycaemia neonatal [Recovered/Resolved]
  - Upper respiratory tract infection [Recovered/Resolved]
  - Gastroenteritis [Recovered/Resolved]
  - Lethargy [Recovered/Resolved]
  - Foetal exposure during pregnancy [Unknown]
